FAERS Safety Report 19299151 (Version 1)
Quarter: 2021Q2

REPORT INFORMATION
  Report Type: Spontaneous
  Country: ES (occurrence: ES)
  Receive Date: 20210524
  Receipt Date: 20210524
  Transmission Date: 20210717
  Serious: Yes (Hospitalization)
  Sender: FDA-Public Use
  Company Number: ES-PFIZER INC-2021520539

PATIENT
  Age: 68 Year
  Sex: Male

DRUGS (3)
  1. LINEZOLID. [Suspect]
     Active Substance: LINEZOLID
     Indication: POSTOPERATIVE WOUND INFECTION
     Dosage: 600 MG, 2X/DAY (FREQUENCY:12 HOURS; 600 MG INTRAVENOUS EVERY 12 HOURS)
     Route: 042
     Dates: start: 20210214, end: 20210224
  2. PIPERACILIN/TAZOBACTAM [Suspect]
     Active Substance: PIPERACILLIN SODIUM\TAZOBACTAM SODIUM
     Indication: POSTOPERATIVE WOUND INFECTION
     Dosage: 4 G, 4X/DAY (4 G INTRAVENOUS EVERY 6 HOURS)
     Route: 042
     Dates: start: 20210213, end: 20210220
  3. METAMIZOLE [Suspect]
     Active Substance: METAMIZOLE
     Indication: ANALGESIC THERAPY
     Dosage: 2 G, 3X/DAY (FREQ:8 HOURS; 2G EVERY 8 HOURS)
     Route: 042
     Dates: start: 20210206, end: 20210223

REACTIONS (4)
  - Acute kidney injury [Recovered/Resolved]
  - Lymphadenopathy [Recovered/Resolved]
  - Cholestasis [Recovered/Resolved]
  - Drug reaction with eosinophilia and systemic symptoms [Recovered/Resolved]

NARRATIVE: CASE EVENT DATE: 20210216
